FAERS Safety Report 4553552-5 (Version None)
Quarter: 2004Q4

REPORT INFORMATION
  Report Type: 
  Country: None (occurrence: None)
  Receive Date: 20041227
  Receipt Date: 20040901
  Transmission Date: 20050328
  Serious: No
  Sender: FDA-Public Use
  Company Number: 04P-163-0272136-00

PATIENT
  Age: 65 Year
  Sex: Female
  Weight: 81.6475 kg

DRUGS (6)
  1. HUMIRA [Suspect]
     Indication: RHEUMATOID ARTHRITIS
     Dosage: 40 MG, 1 IN 2 WK, SUBCUTANEOUS
     Route: 058
     Dates: start: 20040601
  2. METHOTREXATE [Concomitant]
  3. ESTROGENS CONJUGATED [Concomitant]
  4. VENOCUR [Concomitant]
  5. INDAPAMIDE [Concomitant]
  6. LANSOPRAZOLE [Concomitant]

REACTIONS (1)
  - ALOPECIA [None]
